FAERS Safety Report 9742072 (Version 1)
Quarter: 2013Q4

REPORT INFORMATION
  Report Type: Report from Study
  Country: US (occurrence: US)
  Receive Date: 20131210
  Receipt Date: 20131210
  Transmission Date: 20140711
  Serious: Yes (Hospitalization)
  Sender: FDA-Public Use
  Company Number: US-BRISTOL-MYERS SQUIBB COMPANY-19864941

PATIENT
  Age: 46 Year
  Sex: Male
  Weight: 50.8 kg

DRUGS (1)
  1. DASATINIB [Suspect]
     Indication: CHOLANGIOCARCINOMA
     Dosage: INTER D8-D14, RESTAR AT 70 MG D15?TOTAL DOSE 770 MG
     Route: 048
     Dates: start: 20131017, end: 20131107

REACTIONS (4)
  - Renal failure acute [Not Recovered/Not Resolved]
  - Dehydration [Not Recovered/Not Resolved]
  - Hyponatraemia [Not Recovered/Not Resolved]
  - International normalised ratio increased [Not Recovered/Not Resolved]
